FAERS Safety Report 14169534 (Version 1)
Quarter: 2017Q4

REPORT INFORMATION
  Report Type: Spontaneous
  Country: US (occurrence: US)
  Receive Date: 20171107
  Receipt Date: 20171107
  Transmission Date: 20180321
  Serious: No
  Sender: FDA-Public Use
  Company Number: None

PATIENT
  Sex: Female
  Weight: 63 kg

DRUGS (9)
  1. LETROZOLE. [Concomitant]
     Active Substance: LETROZOLE
  2. ALEVE [Concomitant]
     Active Substance: NAPROXEN SODIUM
  3. BEANO [Concomitant]
     Active Substance: ASPERGILLUS NIGER .ALPHA.-GALACTOSIDASE
  4. HYDROCODONE-ACETAMINOPHEN 5-325MG [Suspect]
     Active Substance: ACETAMINOPHEN\HYDROCODONE BITARTRATE
     Indication: PROCEDURAL PAIN
     Dosage: ?          QUANTITY:2 TABLET(S);OTHER FREQUENCY:EVERY 4-6 HOURS;?
     Route: 048
     Dates: start: 20171026, end: 20171031
  5. TYLENOL [Concomitant]
     Active Substance: ACETAMINOPHEN
  6. MOTRIN [Concomitant]
     Active Substance: IBUPROFEN
  7. VITAMIN D [Concomitant]
     Active Substance: CHOLECALCIFEROL
  8. DAILY VITAMIN [Concomitant]
     Active Substance: VITAMINS
  9. CALCIUM [Concomitant]
     Active Substance: CALCIUM

REACTIONS (2)
  - Therapy cessation [None]
  - Vision blurred [None]

NARRATIVE: CASE EVENT DATE: 20171027
